FAERS Safety Report 16540385 (Version 1)
Quarter: 2019Q3

REPORT INFORMATION
  Report Type: Spontaneous
  Country: US (occurrence: US)
  Receive Date: 20190524
  Receipt Date: 20190524
  Transmission Date: 20191004
  Serious: Yes (Hospitalization)
  Sender: FDA-Public Use
  Company Number: None

PATIENT
  Age: 74 Year
  Sex: Male
  Weight: 78.47 kg

DRUGS (2)
  1. AMLODIPINE [Suspect]
     Active Substance: AMLODIPINE BESYLATE
     Route: 048
     Dates: start: 20180604, end: 20181115
  2. CARVEDILOL. [Suspect]
     Active Substance: CARVEDILOL
     Indication: HYPERTENSION
     Dosage: ?          OTHER DOSE:12.5MG;?
     Route: 048
     Dates: start: 20160329, end: 20181115

REACTIONS (5)
  - Cognitive disorder [None]
  - Product administration error [None]
  - Treatment noncompliance [None]
  - Hypotension [None]
  - Prescribed overdose [None]

NARRATIVE: CASE EVENT DATE: 20181115
